FAERS Safety Report 8936855 (Version 1)
Quarter: 2012Q4

REPORT INFORMATION
  Report Type: Report from Study
  Country: JP (occurrence: JP)
  Receive Date: 20121130
  Receipt Date: 20121130
  Transmission Date: 20130627
  Serious: Yes (Other)
  Sender: FDA-Public Use
  Company Number: JP-VERTEX PHARMACEUTICAL INC.-2012-025303

PATIENT
  Age: 44 Year
  Sex: Male

DRUGS (10)
  1. VX-950 (TELAPREVIR) [Suspect]
     Indication: CHRONIC HEPATITIS C
     Dosage: 2250 mg, qd
     Route: 048
     Dates: start: 20120809, end: 20121016
  2. RIBAVIRIN [Suspect]
     Indication: CHRONIC HEPATITIS C
     Dosage: 800 mg, qd
     Route: 048
     Dates: start: 20120809, end: 20120829
  3. RIBAVIRIN [Suspect]
     Dosage: 600 mg, qd
     Route: 048
     Dates: start: 20120830, end: 20120906
  4. RIBAVIRIN [Suspect]
     Dosage: 400 mg, qd
     Route: 048
     Dates: start: 20120907, end: 20121016
  5. RIBAVIRIN [Suspect]
     Dosage: UNK
  6. PEGINTERFERON ALFA-2B [Suspect]
     Indication: CHRONIC HEPATITIS C
     Dosage: 1.5 ?g/kg, UNK
     Route: 058
     Dates: start: 20120809, end: 20121011
  7. PREDONINE                          /00016201/ [Suspect]
     Indication: ADVERSE EVENT
     Dosage: 20 mg, qd
     Route: 048
     Dates: start: 20121002, end: 20121003
  8. PREDONINE                          /00016201/ [Suspect]
     Dosage: 30 mg, qd
     Route: 048
     Dates: start: 20121004
  9. UNISIA [Concomitant]
     Dosage: 1 DF, qd
     Route: 048
  10. GASTER [Concomitant]
     Dosage: 40 mg, qd
     Route: 048
     Dates: start: 20121026

REACTIONS (1)
  - Rash [Recovered/Resolved]
